FAERS Safety Report 8623022-3 (Version None)
Quarter: 2012Q3

REPORT INFORMATION
  Report Type: 
  Country: None (occurrence: None)
  Receive Date: 20120827
  Receipt Date: 20120817
  Transmission Date: 20120928
  Serious: Yes (Disabling)
  Sender: FDA-Public Use
  Company Number: JP-CELGENEUS-087-21880-12081711

PATIENT
  Age: 69 Year
  Sex: Male

DRUGS (3)
  1. OXYGEN [Concomitant]
     Indication: HYPOXIA
     Route: 055
     Dates: start: 20120812
  2. DEXAMETHASONE ACETATE [Suspect]
     Indication: MULTIPLE MYELOMA
     Dosage: 40 MILLIGRAM
     Route: 048
     Dates: start: 20120710
  3. REVLIMID [Suspect]
     Indication: MULTIPLE MYELOMA
     Dosage: 25 MILLIGRAM
     Route: 048
     Dates: start: 20120710

REACTIONS (3)
  - RHINORRHOEA [None]
  - OBLITERATIVE BRONCHIOLITIS [None]
  - COUGH [None]
